FAERS Safety Report 8843406 (Version 1)
Quarter: 2012Q4

REPORT INFORMATION
  Report Type: 
  Country: CA (occurrence: CA)
  Receive Date: 20121016
  Receipt Date: 20121016
  Transmission Date: 20130627
  Serious: Yes (Disabling)
  Sender: FDA-Public Use
  Company Number: CA-ELI_LILLY_AND_COMPANY-CA201210001925

PATIENT
  Age: 53 Year
  Sex: Female

DRUGS (6)
  1. HUMALOG LISPRO [Suspect]
     Dosage: 20 u, qd
  2. HUMALOG LISPRO [Suspect]
     Dosage: 4 u, qd
  3. HUMALOG LISPRO [Suspect]
     Dosage: 6 u, qd
  4. LANTUS [Concomitant]
     Dosage: 15 u, qd
     Route: 058
  5. LANTUS [Concomitant]
     Dosage: 32 u, qd
     Route: 058
  6. LANTUS [Concomitant]
     Dosage: 12 u, qd
     Route: 058

REACTIONS (3)
  - Hyperglycaemia [Unknown]
  - Hypoglycaemia [Unknown]
  - Renal failure [Unknown]
